FAERS Safety Report 9101823 (Version 1)
Quarter: 2013Q1

REPORT INFORMATION
  Report Type: Spontaneous
  Country: FR (occurrence: FR)
  Receive Date: 20130218
  Receipt Date: 20130218
  Transmission Date: 20140127
  Serious: Yes (Life-Threatening, Hospitalization)
  Sender: FDA-Public Use
  Company Number: FR-ASTRAZENECA-2013SE09846

PATIENT
  Age: 76 Year
  Sex: Male

DRUGS (6)
  1. BRILIQUE [Suspect]
     Route: 048
     Dates: start: 20121214, end: 20121214
  2. BRILIQUE [Suspect]
     Route: 048
     Dates: start: 20121215, end: 20121228
  3. PREVISCAN [Suspect]
     Indication: INTRACARDIAC THROMBUS
     Route: 048
     Dates: start: 20121228
  4. KARDEGIC [Concomitant]
  5. TAHOR [Concomitant]
  6. DETENSIEL [Concomitant]

REACTIONS (4)
  - Thrombocytopenia [Recovered/Resolved]
  - Anaemia [Unknown]
  - Intracardiac thrombus [Unknown]
  - Melaena [Unknown]
